FAERS Safety Report 4678552-6 (Version None)
Quarter: 2005Q2

REPORT INFORMATION
  Report Type: 
  Country: None (occurrence: None)
  Receive Date: 20050527
  Receipt Date: 20050517
  Transmission Date: 20051028
  Serious: Yes (Other)
  Sender: FDA-Public Use
  Company Number: ALMO2005012

PATIENT
  Sex: Female

DRUGS (1)
  1. AXERT [Suspect]
     Indication: MIGRAINE

REACTIONS (1)
  - STATUS ASTHMATICUS [None]
